FAERS Safety Report 6163864-X (Version None)
Quarter: 2009Q2

REPORT INFORMATION
  Report Type: 
  Country: None (occurrence: None)
  Receive Date: 20090420
  Receipt Date: 20090407
  Transmission Date: 20091009
  Serious: Yes (Other)
  Sender: FDA-Public Use
  Company Number: GXKR2009GB04448

PATIENT
  Sex: Female

DRUGS (2)
  1. AMLODIPINE [Suspect]
     Dosage: FOETAL DRUG EXPOSURE VIA FATHER
  2. BENDROFLUMETHIAZIDE (NGX) (BENDROFLUMETHIAZIDE) UNKNOWN [Suspect]
     Dosage: FOETAL DRUG EXPOSURE VIA FATHER

REACTIONS (3)
  - ABORTION SPONTANEOUS [None]
  - DRUG EXPOSURE DURING PREGNANCY [None]
  - PATERNAL DRUGS AFFECTING FOETUS [None]
